FAERS Safety Report 8063057-5 (Version None)
Quarter: 2012Q1

REPORT INFORMATION
  Report Type: 
  Country: None (occurrence: None)
  Receive Date: 20120123
  Receipt Date: 20120119
  Transmission Date: 20120608
  Serious: Yes (Other)
  Sender: FDA-Public Use
  Company Number: GB-JNJFOC-20120108257

PATIENT
  Age: 36 Year
  Sex: Male
  Weight: 89 kg

DRUGS (3)
  1. DIAZEPAM [Concomitant]
     Route: 065
     Dates: start: 20120104, end: 20120108
  2. ACETAMINOPHEN AND CODEINE PHOSPHATE [Suspect]
     Indication: PRODUCT USED FOR UNKNOWN INDICATION
     Route: 065
     Dates: start: 20120104
  3. IBUPROFEN [Concomitant]
     Route: 065
     Dates: start: 20120104

REACTIONS (2)
  - GLOSSITIS [None]
  - RASH MACULAR [None]
